FAERS Safety Report 18108133 (Version 1)
Quarter: 2020Q3

REPORT INFORMATION
  Report Type: Spontaneous
  Country: US (occurrence: US)
  Receive Date: 20200803
  Receipt Date: 20200803
  Transmission Date: 20201103
  Serious: No
  Sender: FDA-Public Use
  Company Number: US-ASSERTIO THERAPEUTICS, INC.-US-2019DEP001167

PATIENT
  Age: 55 Year
  Sex: Female

DRUGS (2)
  1. ZIPSOR [Suspect]
     Active Substance: DICLOFENAC POTASSIUM
     Indication: SPINAL PAIN
     Dosage: UNK
     Route: 048
  2. ZIPSOR [Suspect]
     Active Substance: DICLOFENAC POTASSIUM
     Dosage: 25 MG, BID
     Route: 048

REACTIONS (1)
  - Aphthous ulcer [Not Recovered/Not Resolved]

NARRATIVE: CASE EVENT DATE: 20190927
